FAERS Safety Report 9758388 (Version 1)
Quarter: 2013Q4

REPORT INFORMATION
  Report Type: Spontaneous
  Country: US (occurrence: None)
  Receive Date: 20131213
  Receipt Date: 20131213
  Transmission Date: 20140711
  Serious: Yes (Disabling)
  Sender: FDA-Public Use
  Company Number: None

PATIENT
  Age: 64 Year
  Sex: Female
  Weight: 60.78 kg

DRUGS (1)
  1. XIAFLEX [Suspect]
     Indication: DUPUYTREN^S CONTRACTURE
     Dates: start: 20130805, end: 20130805

REACTIONS (5)
  - Blood blister [None]
  - Oedema peripheral [None]
  - Dupuytren^s contracture [None]
  - Condition aggravated [None]
  - Ligament rupture [None]
